FAERS Safety Report 4312537-4 (Version None)
Quarter: 2004Q1

REPORT INFORMATION
  Report Type: 
  Country: None (occurrence: None)
  Receive Date: 20040305
  Receipt Date: 20040223
  Transmission Date: 20041129
  Serious: Yes (Other)
  Sender: FDA-Public Use
  Company Number: PHFR2004GB01155

PATIENT
  Age: 57 Year
  Sex: Female
  Weight: 70 kg

DRUGS (2)
  1. ZOMETA [Suspect]
     Dosage: 4MG/DAY
     Route: 042
     Dates: start: 20040202
  2. ANASTROZOLE [Concomitant]
     Indication: BREAST CANCER
     Dosage: 1MG/DAY
     Route: 048
     Dates: start: 20030101

REACTIONS (10)
  - ASTHENIA [None]
  - COLD SWEAT [None]
  - DIZZINESS [None]
  - FACE OEDEMA [None]
  - HOT FLUSH [None]
  - INFLUENZA LIKE ILLNESS [None]
  - NAUSEA [None]
  - PALLOR [None]
  - PANIC ATTACK [None]
  - SKIN DISCOLOURATION [None]
